FAERS Safety Report 24167835 (Version 1)
Quarter: 2024Q3

REPORT INFORMATION
  Report Type: Spontaneous
  Country: US (occurrence: US)
  Receive Date: 20240802
  Receipt Date: 20240802
  Transmission Date: 20241016
  Serious: Yes (Other)
  Sender: NOVO NORDISK
  Company Number: US-NOVOPROD-1263311

PATIENT
  Sex: Female
  Weight: 106.58 kg

DRUGS (2)
  1. WEGOVY [Suspect]
     Active Substance: SEMAGLUTIDE
     Indication: Obesity
     Dosage: UNK
     Route: 058
     Dates: start: 202301, end: 202403
  2. WEGOVY [Suspect]
     Active Substance: SEMAGLUTIDE
     Dosage: UNK
     Route: 058
     Dates: start: 202406, end: 202407

REACTIONS (7)
  - Endometrial cancer [Recovered/Resolved]
  - Gallbladder disorder [Not Recovered/Not Resolved]
  - Food allergy [Recovered/Resolved]
  - Peripheral swelling [Unknown]
  - Pruritus [Unknown]
  - Ill-defined disorder [Unknown]
  - Dyspepsia [Recovered/Resolved]

NARRATIVE: CASE EVENT DATE: 20230101
